FAERS Safety Report 10211246 (Version 1)
Quarter: 2014Q2

REPORT INFORMATION
  Report Type: Spontaneous
  Country: DE (occurrence: DE)
  Receive Date: 20140602
  Receipt Date: 20140602
  Transmission Date: 20141212
  Serious: Yes (Hospitalization)
  Sender: FDA-Public Use
  Company Number: DE-SA-2014SA068810

PATIENT
  Age: 49 Year
  Sex: Female

DRUGS (7)
  1. DOCETAXEL [Suspect]
     Indication: HER-2 POSITIVE BREAST CANCER
     Route: 065
  2. CARBOPLATIN [Suspect]
     Indication: HER-2 POSITIVE BREAST CANCER
     Route: 065
  3. TRASTUZUMAB [Suspect]
     Indication: HER-2 POSITIVE BREAST CANCER
     Dosage: FORM - SOLUTION
     Route: 058
     Dates: start: 20130114, end: 20131111
  4. TRASTUZUMAB [Suspect]
     Indication: HER-2 POSITIVE BREAST CANCER
     Dosage: FORM - SOLUTION
     Route: 058
     Dates: start: 20131202
  5. ATENOLOL [Concomitant]
     Dates: start: 2012
  6. TAMOXIFEN [Concomitant]
     Dates: start: 20130521, end: 20131023
  7. IBUPROFEN [Concomitant]
     Dates: start: 20130408, end: 20131024

REACTIONS (1)
  - Osteoarthritis [Recovered/Resolved]
